FAERS Safety Report 8178293-7 (Version None)
Quarter: 2012Q1

REPORT INFORMATION
  Report Type: 
  Country: None (occurrence: None)
  Receive Date: 20120126
  Receipt Date: 20111031
  Transmission Date: 20120608
  Serious: No
  Sender: FDA-Public Use
  Company Number: PHEH2011US08240

PATIENT

DRUGS (1)
  1. AFINITOR [Suspect]
     Indication: PANCREATIC CARCINOMA
     Dosage: 10MG DAILY, ORAL
     Route: 048
     Dates: start: 20111017

REACTIONS (2)
  - APHTHOUS STOMATITIS [None]
  - RASH [None]
